FAERS Safety Report 19516566 (Version 2)
Quarter: 2022Q2

REPORT INFORMATION
  Report Type: Spontaneous
  Country: US (occurrence: US)
  Receive Date: 20210710
  Receipt Date: 20220418
  Transmission Date: 20220721
  Serious: No
  Sender: FDA-Public Use
  Company Number: US-UCBSA-2021032889

PATIENT
  Sex: Female

DRUGS (1)
  1. NEUPRO [Suspect]
     Active Substance: ROTIGOTINE
     Indication: Neuropathy peripheral
     Dosage: 2 MILLIGRAM, ONCE DAILY (QD)

REACTIONS (2)
  - Product use in unapproved indication [Unknown]
  - Product adhesion issue [Unknown]
